FAERS Safety Report 9148569 (Version 1)
Quarter: 2013Q1

REPORT INFORMATION
  Report Type: Spontaneous
  Country: US (occurrence: None)
  Receive Date: 20130228
  Receipt Date: 20130228
  Transmission Date: 20140127
  Serious: Yes (Hospitalization)
  Sender: FDA-Public Use
  Company Number: None

PATIENT
  Age: 46 Year
  Sex: Female

DRUGS (1)
  1. CIPROFLOXACIN 500MG [Suspect]
     Indication: CYSTITIS
     Dosage: T TABLET DAILY ONCE DAILY PO
     Route: 048

REACTIONS (2)
  - Vertigo [None]
  - Dehydration [None]
